FAERS Safety Report 8534263-8 (Version None)
Quarter: 2012Q3

REPORT INFORMATION
  Report Type: 
  Country: None (occurrence: None)
  Receive Date: 20120724
  Receipt Date: 20120709
  Transmission Date: 20120928
  Serious: Yes (Other)
  Sender: FDA-Public Use
  Company Number: IT-WATSON-2012-12350

PATIENT
  Age: 9 Year
  Sex: Female

DRUGS (2)
  1. BECLOMETHASONE DIPROPIONATE [Suspect]
     Indication: ASTHMA
     Dosage: 0.8 MG, DAILY
     Route: 050
  2. ALBUTEROL [Suspect]
     Indication: ASTHMA
     Dosage: 6 MG, DAILY
     Route: 050

REACTIONS (1)
  - CYSTITIS HAEMORRHAGIC [None]
